FAERS Safety Report 5167117-8 (Version None)
Quarter: 2006Q4

REPORT INFORMATION
  Report Type: 
  Country: None (occurrence: None)
  Receive Date: 20061207
  Receipt Date: 20061201
  Transmission Date: 20070319
  Serious: Yes (Hospitalization)
  Sender: FDA-Public Use
  Company Number: FR-GLAXOSMITHKLINE-B0449338A

PATIENT
  Age: 93 Year
  Sex: Female
  Weight: 61 kg

DRUGS (8)
  1. AUGMENTIN '125' [Suspect]
     Dosage: 1.5G PER DAY
     Route: 048
     Dates: start: 20061006, end: 20061030
  2. CELESTENE [Concomitant]
     Dosage: 2MG PER DAY
     Route: 048
     Dates: start: 20061006, end: 20061030
  3. HELICIDINE [Concomitant]
     Route: 048
     Dates: start: 20060115, end: 20061015
  4. LEGALON [Concomitant]
     Route: 048
     Dates: start: 20060115, end: 20061031
  5. ZOLPIDEM TARTRATE [Concomitant]
     Dosage: 10MG PER DAY
     Route: 048
     Dates: start: 20060215, end: 20061027
  6. SERETIDE [Concomitant]
     Route: 055
     Dates: start: 20060215, end: 20061031
  7. IMOVANE [Concomitant]
     Route: 065
     Dates: start: 20061027
  8. FLUARIX [Concomitant]
     Indication: PROPHYLAXIS
     Dates: start: 20061030, end: 20061030

REACTIONS (5)
  - HEPATITIS CHOLESTATIC [None]
  - JAUNDICE [None]
  - NAUSEA [None]
  - PRURITUS [None]
  - VOMITING [None]
